FAERS Safety Report 12555529 (Version 1)
Quarter: 2016Q3

REPORT INFORMATION
  Report Type: Spontaneous
  Country: US (occurrence: None)
  Receive Date: 20160713
  Receipt Date: 20160713
  Transmission Date: 20161109
  Serious: Yes (Hospitalization)
  Sender: FDA-Public Use
  Company Number: None

PATIENT
  Age: 67 Year
  Sex: Male

DRUGS (13)
  1. KCI [Concomitant]
  2. FLONASE [Concomitant]
     Active Substance: FLUTICASONE PROPIONATE
  3. PREDNISONE. [Concomitant]
     Active Substance: PREDNISONE
  4. DYAZIDE [Concomitant]
     Active Substance: HYDROCHLOROTHIAZIDE\TRIAMTERENE
  5. SUSPAR [Concomitant]
  6. TOBRAMYCIN 300MG/5ML AKORN INC [Suspect]
     Active Substance: TOBRAMYCIN
     Indication: CYSTIC FIBROSIS
     Dosage: INL VIA NEBULIZER
     Dates: start: 20160513
  7. LASIX [Concomitant]
     Active Substance: FUROSEMIDE
  8. LAVASTATIN [Concomitant]
  9. DILTIAZEM. [Concomitant]
     Active Substance: DILTIAZEM
  10. ATIVAN [Concomitant]
     Active Substance: LORAZEPAM
  11. NORVASC [Concomitant]
     Active Substance: AMLODIPINE BESYLATE
  12. FLOMAX [Concomitant]
     Active Substance: TAMSULOSIN HYDROCHLORIDE
  13. DALIRESP [Concomitant]
     Active Substance: ROFLUMILAST

REACTIONS (3)
  - Dyspnoea [None]
  - White blood cell count increased [None]
  - Infection [None]

NARRATIVE: CASE EVENT DATE: 20160710
